FAERS Safety Report 9745347 (Version 2)
Quarter: 2013Q4

REPORT INFORMATION
  Report Type: Spontaneous
  Country: CH (occurrence: CH)
  Receive Date: 20131211
  Receipt Date: 20131211
  Transmission Date: 20140711
  Serious: Yes (Other)
  Sender: FDA-Public Use
  Company Number: CH-ABBVIE-13P-151-1142514-00

PATIENT
  Age: 39 Year
  Sex: Female

DRUGS (2)
  1. RITONAVIR [Suspect]
     Indication: HIV INFECTION
  2. SANDIMMUN [Suspect]
     Indication: PRODUCT USED FOR UNKNOWN INDICATION

REACTIONS (1)
  - Drug clearance decreased [Recovered/Resolved]
